FAERS Safety Report 25462506 (Version 1)
Quarter: 2025Q2

REPORT INFORMATION
  Report Type: Spontaneous
  Country: US (occurrence: US)
  Receive Date: 20250620
  Receipt Date: 20250620
  Transmission Date: 20250716
  Serious: Yes (Other)
  Sender: MERCK SHARP & DOHME LLC
  Company Number: US-009507513-2295639

PATIENT
  Sex: Male

DRUGS (1)
  1. KEYTRUDA [Suspect]
     Active Substance: PEMBROLIZUMAB

REACTIONS (2)
  - Syncope [Unknown]
  - Vertigo [Unknown]
